FAERS Safety Report 9512215 (Version 6)
Quarter: 2014Q1

REPORT INFORMATION
  Report Type: Report from Study
  Country: TR (occurrence: TR)
  Receive Date: 20130910
  Receipt Date: 20140321
  Transmission Date: 20141002
  Serious: Yes (Hospitalization, Other)
  Sender: FDA-Public Use
  Company Number: PHHY2013TR086584

PATIENT
  Sex: Male
  Weight: 105 kg

DRUGS (3)
  1. SANDOSTATIN LAR [Suspect]
     Indication: ACROMEGALY
     Dosage: 10 MG, ONCE EVERY 28 DAYS
     Route: 030
     Dates: start: 20120901
  2. SANDOSTATIN LAR [Suspect]
     Dosage: 10 MG, ONCE EVERY 28 DAYS
     Route: 030
     Dates: start: 20130507
  3. SANDOSTATIN LAR [Suspect]
     Dosage: 10 MG, ONCE EVERY 28 DAYS
     Route: 030
     Dates: start: 20131226

REACTIONS (10)
  - Chest discomfort [Recovered/Resolved]
  - Dyspnoea [Recovered/Resolved]
  - Cholelithiasis [Recovering/Resolving]
  - Left atrial dilatation [Recovered/Resolved]
  - Left ventricular hypertrophy [Recovered/Resolved]
  - Cardiac valve disease [Recovered/Resolved]
  - Eye disorder [Recovered/Resolved]
  - Swelling [Recovered/Resolved]
  - Mydriasis [Recovered/Resolved]
  - Hyperaemia [Recovered/Resolved]
